FAERS Safety Report 15101289 (Version 4)
Quarter: 2018Q4

REPORT INFORMATION
  Report Type: Spontaneous
  Country: FR (occurrence: FR)
  Receive Date: 20180703
  Receipt Date: 20181031
  Transmission Date: 20190204
  Serious: Yes (Hospitalization)
  Sender: FDA-Public Use
  Company Number: FR-AUROBINDO-AUR-APL-2018-033549

PATIENT
  Age: 54 Year
  Sex: Female

DRUGS (19)
  1. LANTUS [Suspect]
     Active Substance: INSULIN GLARGINE
     Dosage: 76 U, QD
     Route: 058
     Dates: start: 20180301, end: 20180301
  2. LANTUS [Suspect]
     Active Substance: INSULIN GLARGINE
     Dosage: 80 U, QD
     Route: 058
     Dates: start: 20180302, end: 20180308
  3. LANTUS [Suspect]
     Active Substance: INSULIN GLARGINE
     Dosage: 84 U, QD
     Route: 058
     Dates: start: 20180309, end: 20180322
  4. LEVOTHYROX [Concomitant]
     Active Substance: LEVOTHYROXINE
     Indication: HYPERTHYROIDISM
     Dosage: 75 MG
     Route: 048
     Dates: start: 20110406
  5. AMOXICILLIN. [Concomitant]
     Active Substance: AMOXICILLIN
     Indication: NASOPHARYNGITIS
     Dosage: 3 G ()
     Route: 048
     Dates: start: 20180522, end: 20180529
  6. AMAREL [Suspect]
     Active Substance: GLIMEPIRIDE
     Indication: TYPE 2 DIABETES MELLITUS
     Dosage: 3 MG ()
     Route: 048
     Dates: start: 2015, end: 20180601
  7. METFORMIN [Suspect]
     Active Substance: METFORMIN HYDROCHLORIDE
     Indication: TYPE 2 DIABETES MELLITUS
     Dosage: 2000 MG, UNK
     Route: 048
     Dates: start: 2001
  8. RAMIPRIL. [Concomitant]
     Active Substance: RAMIPRIL
     Indication: HYPERTENSION
     Dosage: 20 MG
     Route: 048
     Dates: start: 201609
  9. SOTAGLIFLOZIN [Suspect]
     Active Substance: SOTAGLIFLOZIN
     Indication: TYPE 2 DIABETES MELLITUS
     Dosage: 2 DOSAGE FORM, DAILY, 2 DF, QD
     Route: 048
     Dates: start: 20180323
  10. SOTAGLIFLOZIN [Suspect]
     Active Substance: SOTAGLIFLOZIN
     Dosage: 2 DOSAGE FORM, DAILY, 2 DF, QD
     Route: 048
     Dates: start: 20180525
  11. GLYCERYL TRINITRATE [Concomitant]
     Active Substance: NITROGLYCERIN
     Indication: MYOCARDIAL INFARCTION
     Dosage: UNK, PRN  ; AS NECESSARY
     Route: 065
     Dates: start: 20150523
  12. ASPIRINE [Concomitant]
     Active Substance: ASPIRIN
     Indication: MYOCARDIAL INFARCTION
     Dosage: 100 MG ()
     Route: 048
     Dates: start: 201609
  13. TRINITRIN [Concomitant]
     Active Substance: NITROGLYCERIN
     Indication: MYOCARDIAL INFARCTION
     Dosage: UNK, PRN () ; AS NECESSARY
     Route: 050
  14. PARACETAMOL [Concomitant]
     Active Substance: ACETAMINOPHEN
     Indication: NASOPHARYNGITIS
     Dosage: 1 G
     Route: 048
     Dates: start: 20180522, end: 20180529
  15. LANTUS [Suspect]
     Active Substance: INSULIN GLARGINE
     Indication: TYPE 2 DIABETES MELLITUS
     Dosage: 72 U, QD
     Route: 058
     Dates: start: 20180226, end: 20180228
  16. AMAREL [Suspect]
     Active Substance: GLIMEPIRIDE
     Dosage: 1.5 MG
     Route: 048
  17. TRINITRIN [Concomitant]
     Active Substance: NITROGLYCERIN
     Dosage: 1 DF PRN () ; AS NECESSARY
     Route: 050
     Dates: start: 20150523
  18. SOTAGLIFLOZIN [Suspect]
     Active Substance: SOTAGLIFLOZIN
     Dosage: 2 DOSAGE FORM, DAILY, 2 DF, QD
     Route: 048
     Dates: start: 20180420
  19. BISOPROLOL [Concomitant]
     Active Substance: BISOPROLOL
     Indication: HYPERTENSION
     Dosage: 7.5 MG
     Route: 048
     Dates: start: 201505

REACTIONS (2)
  - Palpitations [Recovered/Resolved]
  - Hypoglycaemia [Recovered/Resolved]

NARRATIVE: CASE EVENT DATE: 20180606
